FAERS Safety Report 14871384 (Version 1)
Quarter: 2018Q2

REPORT INFORMATION
  Report Type: Spontaneous
  Country: US (occurrence: US)
  Receive Date: 20180424
  Receipt Date: 20180424
  Transmission Date: 20180711
  Serious: Yes (Life-Threatening, Hospitalization)
  Sender: FDA-Public Use
  Company Number: None

PATIENT
  Age: 40 Year
  Weight: 117 kg

DRUGS (1)
  1. LATUDA [Suspect]
     Active Substance: LURASIDONE HYDROCHLORIDE
     Indication: BIPOLAR DISORDER
     Dosage: ?          QUANTITY:1 TABLET(S);?
     Route: 048
     Dates: start: 20180403, end: 20180417

REACTIONS (7)
  - Asthenia [None]
  - Motor dysfunction [None]
  - Balance disorder [None]
  - Restless legs syndrome [None]
  - Dystonia [None]
  - Discomfort [None]
  - Memory impairment [None]

NARRATIVE: CASE EVENT DATE: 20180417
